FAERS Safety Report 16836091 (Version 1)
Quarter: 2019Q3

REPORT INFORMATION
  Report Type: Spontaneous
  Country: US (occurrence: US)
  Receive Date: 20190921
  Receipt Date: 20190921
  Transmission Date: 20191005
  Serious: Yes (Hospitalization, Other)
  Sender: FDA-Public Use
  Company Number: US-EMCURE PHARMACEUTICALS LTD-2019-EPL-0665

PATIENT
  Sex: Female

DRUGS (1)
  1. ACETAMINOPHEN. [Suspect]
     Active Substance: ACETAMINOPHEN
     Dosage: SNIFFING CRUSHED OVER-THE-COUNTER ACETAMINOPHEN
     Route: 045

REACTIONS (10)
  - Oropharyngeal pain [Recovered/Resolved]
  - Incorrect route of product administration [Unknown]
  - Dysphonia [Recovered/Resolved]
  - Eustachian tube dysfunction [Unknown]
  - Weight decreased [Unknown]
  - Sinusitis [Unknown]
  - Drug abuse [Unknown]
  - Nasal necrosis [Recovering/Resolving]
  - Nasal septum perforation [Recovering/Resolving]
  - Sleep disorder [Unknown]
